FAERS Safety Report 16725354 (Version 1)
Quarter: 2019Q3

REPORT INFORMATION
  Report Type: Spontaneous
  Country: US (occurrence: US)
  Receive Date: 20190821
  Receipt Date: 20190821
  Transmission Date: 20191005
  Serious: No
  Sender: FDA-Public Use
  Company Number: US-GLAXOSMITHKLINE-US2019147457

PATIENT
  Age: 31 Year
  Sex: Male

DRUGS (2)
  1. ABREVA [Suspect]
     Active Substance: DOCOSANOL
     Indication: ORAL HERPES
     Dosage: UNK UNK, TID
     Route: 062
     Dates: start: 20180623, end: 20180708
  2. ABREVA [Suspect]
     Active Substance: DOCOSANOL
     Dosage: UNK UNK, TID
     Route: 062
     Dates: start: 20180623, end: 20180708

REACTIONS (2)
  - Incorrect product administration duration [Unknown]
  - Inappropriate schedule of product administration [Unknown]

NARRATIVE: CASE EVENT DATE: 20180623
